APPROVED DRUG PRODUCT: FLUDROCORTISONE ACETATE
Active Ingredient: FLUDROCORTISONE ACETATE
Strength: 0.1MG
Dosage Form/Route: TABLET;ORAL
Application: A215279 | Product #001 | TE Code: AB
Applicant: NOVITIUM PHARMA LLC
Approved: May 31, 2022 | RLD: No | RS: No | Type: RX